FAERS Safety Report 17289631 (Version 1)
Quarter: 2020Q1

REPORT INFORMATION
  Report Type: Spontaneous
  Country: US (occurrence: US)
  Receive Date: 20200120
  Receipt Date: 20200120
  Transmission Date: 20200409
  Serious: Yes (Hospitalization)
  Sender: FDA-Public Use
  Company Number: US-ASTRAZENECA-2020SE07352

PATIENT
  Sex: Male
  Weight: 6.7 kg

DRUGS (1)
  1. SYNAGIS [Suspect]
     Active Substance: PALIVIZUMAB
     Route: 030
     Dates: start: 20191101

REACTIONS (3)
  - Respiratory syncytial virus infection [Unknown]
  - Product dose omission [Unknown]
  - Pneumonia respiratory syncytial viral [Unknown]
